FAERS Safety Report 4323172-6 (Version None)
Quarter: 2004Q1

REPORT INFORMATION
  Report Type: 
  Country: None (occurrence: None)
  Receive Date: 20040322
  Receipt Date: 20040305
  Transmission Date: 20041129
  Serious: Yes (Death)
  Sender: FDA-Public Use
  Company Number: M04-INT-035

PATIENT
  Age: 70 Year
  Sex: Male

DRUGS (1)
  1. INTEGRILIN [Suspect]
     Indication: CORONARY ANGIOPLASTY
     Dosage: UNKNOWN DOSE X 1: INTRAVENOUS BOLUS
     Route: 040
     Dates: start: 20040222, end: 20040222

REACTIONS (5)
  - ANAPHYLACTIC REACTION [None]
  - DISSEMINATED INTRAVASCULAR COAGULATION [None]
  - HAEMORRHAGE [None]
  - HYPOTENSION [None]
  - THROMBOCYTOPENIA [None]
